FAERS Safety Report 24952637 (Version 1)
Quarter: 2025Q1

REPORT INFORMATION
  Report Type: Report from Study
  Country: US (occurrence: US)
  Receive Date: 20250210
  Receipt Date: 20250210
  Transmission Date: 20250409
  Serious: Yes (Other)
  Sender: ABBVIE
  Company Number: US-ABBVIE-6123019

PATIENT
  Sex: Male

DRUGS (1)
  1. RINVOQ [Suspect]
     Active Substance: UPADACITINIB
     Indication: Rheumatoid arthritis
     Route: 048
     Dates: start: 20210601

REACTIONS (4)
  - Skin cancer [Recovering/Resolving]
  - Pruritus [Recovering/Resolving]
  - Glycosylated haemoglobin abnormal [Recovering/Resolving]
  - Pain in extremity [Recovering/Resolving]
